FAERS Safety Report 12853952 (Version 1)
Quarter: 2016Q4

REPORT INFORMATION
  Report Type: Spontaneous
  Country: DZ (occurrence: DZ)
  Receive Date: 20161017
  Receipt Date: 20161017
  Transmission Date: 20170207
  Serious: Yes (Hospitalization, Other)
  Sender: FDA-Public Use
  Company Number: DZ-ALEXION PHARMACEUTICALS INC.-A201607679

PATIENT
  Age: 32 Year
  Sex: Male

DRUGS (2)
  1. SOLIRIS [Suspect]
     Active Substance: ECULIZUMAB
     Indication: PAROXYSMAL NOCTURNAL HAEMOGLOBINURIA
     Dosage: 600 MG, QW
     Route: 042
     Dates: start: 20160921, end: 20160922
  2. SOLIRIS [Suspect]
     Active Substance: ECULIZUMAB
     Dosage: 900 MG, Q2W
     Route: 042
     Dates: start: 20161006

REACTIONS (7)
  - Nasopharyngitis [Not Recovered/Not Resolved]
  - Disseminated intravascular coagulation [Unknown]
  - Inappropriate schedule of drug administration [Unknown]
  - Pancytopenia [Unknown]
  - Pyrexia [Unknown]
  - Haemoglobin decreased [Unknown]
  - Infection [Not Recovered/Not Resolved]

NARRATIVE: CASE EVENT DATE: 20160922
